FAERS Safety Report 18460784 (Version 1)
Quarter: 2020Q4

REPORT INFORMATION
  Report Type: Other
  Country: CA (occurrence: CA)
  Receive Date: 20201104
  Receipt Date: 20201104
  Transmission Date: 20210114
  Serious: Yes (Other)
  Sender: FDA-Public Use
  Company Number: CA-CELLTRION INC.-2020CA030080

PATIENT

DRUGS (11)
  1. ALENDRONATE SANDOZ [Concomitant]
     Active Substance: ALENDRONATE SODIUM
  2. IRON [Concomitant]
     Active Substance: IRON
     Route: 065
  3. RAMIPRIL. [Concomitant]
     Active Substance: RAMIPRIL
  4. TYLENOL [Concomitant]
     Active Substance: ACETAMINOPHEN
  5. RITUXIMAB (UNKNOWN) [Suspect]
     Active Substance: RITUXIMAB
     Indication: RHEUMATOID ARTHRITIS
     Dosage: 1000 MG
     Route: 042
  6. SOLU-MEDROL [Concomitant]
     Active Substance: METHYLPREDNISOLONE SODIUM SUCCINATE
  7. CETIRIZINE HYDROCHLORIDE. [Concomitant]
     Active Substance: CETIRIZINE HYDROCHLORIDE
  8. VERAPAMIL [Concomitant]
     Active Substance: VERAPAMIL HYDROCHLORIDE
  9. BENADRYL [Concomitant]
     Active Substance: DIPHENHYDRAMINE HYDROCHLORIDE
  10. SYNTHROID [Concomitant]
     Active Substance: LEVOTHYROXINE SODIUM
  11. TYLENOL ARTHRITIS PAIN [Concomitant]
     Active Substance: ACETAMINOPHEN

REACTIONS (2)
  - Uterine cancer [Unknown]
  - Pain [Unknown]
